FAERS Safety Report 6024996-X (Version None)
Quarter: 2008Q4

REPORT INFORMATION
  Report Type: 
  Country: None (occurrence: None)
  Receive Date: 20081231
  Receipt Date: 20081223
  Transmission Date: 20090506
  Serious: Yes (Life-Threatening, Hospitalization, Disabling, Other)
  Sender: FDA-Public Use
  Company Number: BE-AVENTIS-200815609EU

PATIENT
  Age: 58 Year
  Sex: Male

DRUGS (5)
  1. CLEXANE [Suspect]
     Dosage: DOSE: UNK
     Route: 040
     Dates: start: 20081013, end: 20081013
  2. MAREVAN [Concomitant]
     Indication: ATRIAL FIBRILLATION
     Route: 048
     Dates: start: 20080930, end: 20081010
  3. CLEXANE [Concomitant]
     Indication: ATRIAL FIBRILLATION
     Route: 058
     Dates: start: 20081012, end: 20081013
  4. CLEXANE [Concomitant]
     Route: 058
     Dates: start: 20081012, end: 20081013
  5. ASPIRIN [Concomitant]
     Route: 048
     Dates: start: 20081009, end: 20081013

REACTIONS (2)
  - CATHETER THROMBOSIS [None]
  - HEMIPLEGIA [None]
